FAERS Safety Report 6657970-0 (Version None)
Quarter: 2010Q1

REPORT INFORMATION
  Report Type: 
  Country: None (occurrence: None)
  Receive Date: 20100330
  Receipt Date: 20100317
  Transmission Date: 20100710
  Serious: Yes (Other)
  Sender: FDA-Public Use
  Company Number: DE-ROCHE-693665

PATIENT
  Sex: Male
  Weight: 120 kg

DRUGS (5)
  1. TOCILIZUMAB [Suspect]
     Route: 042
     Dates: start: 20091210, end: 20100204
  2. METEX [Suspect]
     Route: 058
     Dates: start: 20080101, end: 20100301
  3. PREDNISOLON [Concomitant]
     Route: 048
     Dates: start: 20030101
  4. OXYCODONE [Concomitant]
     Route: 048
  5. ALENDRONIC ACID [Concomitant]
     Indication: OSTEOPOROSIS
     Route: 048

REACTIONS (2)
  - PNEUMONITIS [None]
  - RHEUMATOID LUNG [None]
